FAERS Safety Report 13359026 (Version 2)
Quarter: 2017Q2

REPORT INFORMATION
  Report Type: Spontaneous
  Country: US (occurrence: US)
  Receive Date: 20170322
  Receipt Date: 20170525
  Transmission Date: 20170830
  Serious: No
  Sender: FDA-Public Use
  Company Number: US-ASTRAZENECA-2017SE27207

PATIENT
  Sex: Female
  Weight: 63.5 kg

DRUGS (2)
  1. PULMICORT FLEXHALER [Suspect]
     Active Substance: BUDESONIDE
     Indication: ASTHMA
     Dosage: 2 PUFFS, DAILY
     Route: 055
     Dates: start: 201605
  2. CLARITIN OTC [Concomitant]
     Indication: MULTIPLE ALLERGIES
     Dosage: 10.0MG UNKNOWN
     Dates: start: 2016

REACTIONS (2)
  - Device failure [Unknown]
  - Intentional product misuse [Unknown]
